FAERS Safety Report 9603746 (Version 3)
Quarter: 2014Q2

REPORT INFORMATION
  Report Type: Report from Study
  Country: GB (occurrence: GB)
  Receive Date: 20131007
  Receipt Date: 20140504
  Transmission Date: 20141212
  Serious: Yes (Other)
  Sender: FDA-Public Use
  Company Number: GB-US-EMD SERONO, INC.-7241153

PATIENT
  Age: 46 Year
  Sex: Female

DRUGS (2)
  1. REBIF [Suspect]
     Indication: RELAPSING-REMITTING MULTIPLE SCLEROSIS
     Route: 058
     Dates: start: 20130913
  2. REBIF [Suspect]
     Route: 058

REACTIONS (9)
  - Diabetes mellitus [Unknown]
  - Musculoskeletal pain [Unknown]
  - Injection site scab [Unknown]
  - Feeling abnormal [Unknown]
  - Weight decreased [Unknown]
  - Injection site infection [Recovering/Resolving]
  - Injection site haemorrhage [Unknown]
  - Injection site pain [Unknown]
  - Drug dose omission [Unknown]
